FAERS Safety Report 8052594-5 (Version None)
Quarter: 2012Q1

REPORT INFORMATION
  Report Type: 
  Country: None (occurrence: None)
  Receive Date: 20120118
  Receipt Date: 20120109
  Transmission Date: 20120608
  Serious: Yes (Hospitalization)
  Sender: FDA-Public Use
  Company Number: US-BAYER-2010-002075

PATIENT
  Age: 36 Year
  Sex: Female
  Weight: 61 kg

DRUGS (11)
  1. FLUCONAZOLE [Concomitant]
     Dosage: 150 MG, UNK
     Dates: start: 20081203
  2. CLARITIN [Concomitant]
  3. ZYRTEC [Concomitant]
  4. CLOTRIMAZOLE W/BETAMETHASONE DIPROPIONAT [Concomitant]
     Dosage: UNK
     Dates: start: 20081203
  5. ACTIVELLA [Concomitant]
  6. ACETAMINOPHEN [Concomitant]
  7. NAPROXEN (ALEVE) [Concomitant]
  8. NAPROSYN [Concomitant]
  9. MEDROL [Concomitant]
  10. YAZ [Suspect]
     Dosage: UNK
     Dates: end: 20090201
  11. FLEXERIL [Concomitant]

REACTIONS (2)
  - DEEP VEIN THROMBOSIS [None]
  - THROMBOSIS [None]
